FAERS Safety Report 7415625-9 (Version None)
Quarter: 2011Q2

REPORT INFORMATION
  Report Type: 
  Country: None (occurrence: None)
  Receive Date: 20110414
  Receipt Date: 20110331
  Transmission Date: 20111010
  Serious: Yes (Other)
  Sender: FDA-Public Use
  Company Number: US-JNJFOC-20110403797

PATIENT
  Age: 19 Year
  Sex: Female

DRUGS (9)
  1. DILANTIN [Suspect]
     Indication: PRODUCT USED FOR UNKNOWN INDICATION
     Route: 065
  2. HALOPERIDOL [Suspect]
     Indication: AGITATION
     Route: 065
  3. ATROPINE [Concomitant]
     Route: 065
  4. HALOTHANE [Concomitant]
     Route: 065
  5. MEPERIDINE [Concomitant]
     Route: 065
  6. RITALIN [Suspect]
     Indication: PRODUCT USED FOR UNKNOWN INDICATION
     Route: 065
  7. TETRACYCLINE [Suspect]
     Indication: NASOPHARYNGITIS
     Route: 065
  8. PHENYTOIN [Concomitant]
     Route: 065
  9. DECONGESTANTS NOS [Suspect]
     Indication: NASOPHARYNGITIS
     Route: 065

REACTIONS (3)
  - DRUG EXPOSURE DURING PREGNANCY [None]
  - UMBILICAL CORD PROLAPSE [None]
  - PREMATURE LABOUR [None]
